FAERS Safety Report 19719432 (Version 1)
Quarter: 2021Q3

REPORT INFORMATION
  Report Type: Report from Study
  Country: DE (occurrence: DE)
  Receive Date: 20210819
  Receipt Date: 20210819
  Transmission Date: 20211014
  Serious: Yes (Other)
  Sender: FDA-Public Use
  Company Number: DE-AUROBINDO-AUR-APL-2021-023669

PATIENT
  Age: 64 Year
  Sex: Male

DRUGS (3)
  1. ATRIPLA [Concomitant]
     Active Substance: EFAVIRENZ\EMTRICITABINE\TENOFOVIR DISOPROXIL FUMARATE
     Indication: HIV INFECTION
     Dosage: UNK
     Route: 065
  2. ALENDRONIC ACID [Suspect]
     Active Substance: ALENDRONIC ACID
     Indication: BONE MARROW OEDEMA
     Dosage: 70 MILLIGRAM, EVERY WEEK
     Route: 065
  3. EFAVIRENZ+EMTRICITABINE+TENOFOVIR FILM  COATED TABLETS [Suspect]
     Active Substance: EFAVIRENZ\EMTRICITABINE\TENOFOVIR DISOPROXIL FUMARATE
     Indication: HIV INFECTION
     Dosage: UNK
     Route: 065

REACTIONS (5)
  - Product use issue [Unknown]
  - Bone marrow oedema syndrome [Recovered/Resolved]
  - Foot fracture [Recovered/Resolved]
  - Renal failure [Recovering/Resolving]
  - Drug ineffective [Unknown]
